FAERS Safety Report 9061489 (Version 1)
Quarter: 2013Q1

REPORT INFORMATION
  Report Type: Spontaneous
  Country: US (occurrence: None)
  Receive Date: 20130118
  Receipt Date: 20130118
  Transmission Date: 20140127
  Serious: Yes (Death)
  Sender: FDA-Public Use
  Company Number: 2013P1000393

PATIENT
  Age: 49 Year
  Sex: Male

DRUGS (4)
  1. BUTALBITAL,  ACETAMINOPHEN  +  CAFFEINE [Suspect]
     Indication: DRUG ABUSE
     Dosage: ;  PO?UNKNOWN  -  UNKNOWN
     Route: 048
  2. ACETAMINOPHEN\HYDROCODONE [Suspect]
     Indication: DRUG ABUSE
     Dosage: ; PO?UNKNOWN  -  UNKNOWN
     Route: 048
  3. ALPRAZOLAM [Suspect]
     Indication: DRUG ABUSE
     Dosage: ; PO?UNKNOWN  -  UNKNOWN
     Route: 048
  4. ETHANOL [Suspect]
     Indication: DRUG ABUSE

REACTIONS (3)
  - Drug abuse [None]
  - Cardiac arrest [None]
  - Respiratory arrest [None]
